FAERS Safety Report 16964957 (Version 3)
Quarter: 2019Q4

REPORT INFORMATION
  Report Type: Report from Study
  Country: US (occurrence: US)
  Receive Date: 20191028
  Receipt Date: 20191127
  Transmission Date: 20200122
  Serious: Yes (Hospitalization, Other)
  Sender: FDA-Public Use
  Company Number: US-GLAXOSMITHKLINE-2019-TSO01484-US

PATIENT
  Age: 64 Year
  Sex: Female
  Weight: 57.6 kg

DRUGS (6)
  1. NEXIUM [Concomitant]
     Active Substance: ESOMEPRAZOLE MAGNESIUM
     Indication: PRODUCT USED FOR UNKNOWN INDICATION
     Dosage: 20 MG, QD PRN
     Route: 048
  2. NIRAPARIB [Suspect]
     Active Substance: NIRAPARIB
     Dosage: 200 MG, QD
     Route: 048
     Dates: start: 20190801, end: 201911
  3. LEVOTHYROXINE. [Concomitant]
     Active Substance: LEVOTHYROXINE
     Indication: PRODUCT USED FOR UNKNOWN INDICATION
     Dosage: 137 ?G, EVERY OTHER DAY ALTERNATING WITH 150?G
     Route: 048
  4. NIRAPARIB [Suspect]
     Active Substance: NIRAPARIB
     Indication: OVARIAN CANCER
     Dosage: 100 MG DAILY PM WITH FOOD
     Route: 048
     Dates: start: 20190401, end: 20190409
  5. NIRAPARIB [Suspect]
     Active Substance: NIRAPARIB
     Indication: FALLOPIAN TUBE CANCER
     Dosage: 200 MG, QD
     Route: 048
     Dates: start: 2019, end: 2019
  6. CYMBALTA [Concomitant]
     Active Substance: DULOXETINE HYDROCHLORIDE
     Indication: PRODUCT USED FOR UNKNOWN INDICATION
     Dosage: 20 MG, BID
     Route: 048

REACTIONS (17)
  - Constipation [Not Recovered/Not Resolved]
  - Nausea [Unknown]
  - Arthralgia [Unknown]
  - Drug ineffective [Unknown]
  - Ascites [Unknown]
  - Disease progression [Unknown]
  - Laboratory test abnormal [Unknown]
  - Malaise [Not Recovered/Not Resolved]
  - Stent placement [Unknown]
  - Fatigue [Unknown]
  - Abdominal distension [Unknown]
  - Carbohydrate antigen 125 increased [Unknown]
  - Urinary tract infection [Unknown]
  - Underdose [Unknown]
  - Abdominal pain [Unknown]
  - Paraesthesia [Unknown]
  - Pain [Not Recovered/Not Resolved]

NARRATIVE: CASE EVENT DATE: 2019
